FAERS Safety Report 8893785 (Version 1)
Quarter: 2012Q4

REPORT INFORMATION
  Report Type: 
  Country: US (occurrence: US)
  Receive Date: 20121107
  Receipt Date: 20121107
  Transmission Date: 20130627
  Serious: No
  Sender: FDA-Public Use
  Company Number: US-AMGEN-USASP2012030492

PATIENT
  Sex: Male
  Weight: 79.82 kg

DRUGS (8)
  1. ENBREL [Suspect]
     Indication: PRODUCT USED FOR UNKNOWN INDICATION
     Dosage: 50 mg, every 7 days
  2. VITAMIN C                          /00008001/ [Concomitant]
     Dosage: 500 mg, tid
  3. FLAXSEED OIL [Concomitant]
     Dosage: UNK
  4. GINGER                             /01646602/ [Concomitant]
     Dosage: 500 mg, UNK
  5. VITAMIN D3 [Concomitant]
     Dosage: UNK
  6. ZINC [Concomitant]
     Dosage: 50 mg, UNK
  7. METHOTREXATE [Concomitant]
     Dosage: 50 mg/2ml, UNK
  8. PREDNISONE [Concomitant]
     Dosage: 1 mg, UNK

REACTIONS (2)
  - Dizziness [Unknown]
  - Vertigo [Unknown]
